FAERS Safety Report 5927564-0 (Version None)
Quarter: 2008Q4

REPORT INFORMATION
  Report Type: 
  Country: None (occurrence: None)
  Receive Date: 20081020
  Receipt Date: 20081007
  Transmission Date: 20090506
  Serious: Yes (Hospitalization)
  Sender: FDA-Public Use
  Company Number: SPV1-2008-02159

PATIENT
  Age: 18 Year
  Sex: Female
  Weight: 49.9 kg

DRUGS (2)
  1. ADDERALL 10 [Suspect]
     Indication: ATTENTION DEFICIT/HYPERACTIVITY DISORDER
     Dosage: 20 MG, 1X/DAY:QD, ORAL
     Route: 048
     Dates: start: 20080801
  2. LORAZEPAM [Concomitant]

REACTIONS (5)
  - AGGRESSION [None]
  - AGITATION [None]
  - FATIGUE [None]
  - FOLLICULITIS [None]
  - THERAPEUTIC RESPONSE DELAYED [None]
